FAERS Safety Report 10063543 (Version 1)
Quarter: 2014Q1

REPORT INFORMATION
  Report Type: Spontaneous
  Country: US (occurrence: None)
  Receive Date: 20140328
  Receipt Date: 20140328
  Transmission Date: 20141002
  Serious: Yes (Death)
  Sender: FDA-Public Use
  Company Number: PHEH2013US025149

PATIENT
  Age: 64 Year
  Sex: Male
  Weight: 77.1 kg

DRUGS (2)
  1. AFINITOR (RAD) UNKNOWN [Suspect]
     Indication: RENAL CANCER
     Route: 048
     Dates: start: 201303, end: 201309
  2. GLIPIZIDE (GLIPIZIDE) [Concomitant]

REACTIONS (2)
  - Renal cancer metastatic [None]
  - Back pain [None]
